FAERS Safety Report 9204130 (Version 1)
Quarter: 2013Q2

REPORT INFORMATION
  Report Type: Spontaneous
  Country: US (occurrence: US)
  Receive Date: 20130402
  Receipt Date: 20130402
  Transmission Date: 20140414
  Serious: Yes (Other)
  Sender: FDA-Public Use
  Company Number: US-JNJFOC-20130316853

PATIENT
  Age: 57 Year
  Sex: Female
  Weight: 90.72 kg

DRUGS (2)
  1. SUDAFED 12 HOUR [Suspect]
     Route: 048
  2. SUDAFED 12 HOUR [Suspect]
     Indication: NASAL CONGESTION
     Route: 048
     Dates: start: 20130322

REACTIONS (1)
  - Arthropathy [Recovered/Resolved]
